FAERS Safety Report 6252498-4 (Version None)
Quarter: 2009Q3

REPORT INFORMATION
  Report Type: 
  Country: None (occurrence: None)
  Receive Date: 20090701
  Receipt Date: 20090615
  Transmission Date: 20100115
  Serious: Yes (Hospitalization)
  Sender: FDA-Public Use
  Company Number: US-BAYER-200920099NA

PATIENT
  Age: 57 Year
  Sex: Male

DRUGS (19)
  1. NEXAVAR [Suspect]
     Indication: HEPATIC NEOPLASM MALIGNANT
     Route: 048
     Dates: start: 20090402, end: 20090415
  2. GLYBURIDE [Concomitant]
     Indication: DIABETES MELLITUS
     Route: 048
     Dates: start: 20090217
  3. ALBUTEROL [Concomitant]
     Indication: UNEVALUABLE EVENT
     Route: 048
     Dates: start: 20090217
  4. LISINOPRIL [Concomitant]
     Indication: HYPERTENSION
     Route: 048
     Dates: start: 20080801
  5. ASPIRIN [Concomitant]
     Indication: PROPHYLAXIS
     Route: 048
     Dates: start: 20080801
  6. MULTI-VITAMIN [Concomitant]
     Indication: VITAMIN SUPPLEMENTATION
     Route: 048
     Dates: start: 20070101
  7. AMITRIPTYLINE HCL [Concomitant]
     Indication: DEPRESSION
     Route: 048
     Dates: start: 20070101, end: 20090430
  8. AMLODIPINE BESYLATE [Concomitant]
     Indication: HYPERTENSION
     Route: 048
     Dates: start: 20070101
  9. LABETALOL HCL [Concomitant]
     Indication: HYPERTENSION
     Route: 048
     Dates: start: 20080101, end: 20090430
  10. LIDODERM [Concomitant]
     Indication: NEURALGIA
     Route: 061
     Dates: start: 20080811
  11. MIRALAX [Concomitant]
     Indication: PROPHYLAXIS
     Route: 048
     Dates: start: 20090101
  12. PROMETHAZINE W/ CODEINE [Concomitant]
     Route: 048
     Dates: start: 20090101, end: 20090403
  13. FUROSEMIDE INTENSOL [Concomitant]
     Indication: OEDEMA PERIPHERAL
     Route: 048
     Dates: start: 20090101, end: 20090430
  14. ENULOSE [Concomitant]
     Indication: HEPATIC ENCEPHALOPATHY
     Dosage: 40G/60ML
     Route: 048
     Dates: start: 20090403
  15. LYRICA [Concomitant]
     Indication: PERIPHERAL SENSORY NEUROPATHY
     Route: 048
     Dates: start: 20090403, end: 20090430
  16. ENDOCET [Concomitant]
     Indication: PERIPHERAL SENSORY NEUROPATHY
     Dosage: 10-325MG
     Route: 048
     Dates: start: 20090403
  17. ATENOLOL [Concomitant]
     Indication: HYPERTENSION
     Dates: start: 20090403
  18. METHADONE [Concomitant]
     Indication: PERIPHERAL SENSORY NEUROPATHY
     Route: 048
  19. ALDACTONE [Concomitant]
     Indication: OEDEMA PERIPHERAL
     Dates: start: 20090309, end: 20090430

REACTIONS (1)
  - HEPATIC ENCEPHALOPATHY [None]
